FAERS Safety Report 11066014 (Version 2)
Quarter: 2015Q2

REPORT INFORMATION
  Report Type: Spontaneous
  Country: US (occurrence: US)
  Receive Date: 20150425
  Receipt Date: 20150525
  Transmission Date: 20150821
  Serious: No
  Sender: FDA-Public Use
  Company Number: US-JNJFOC-20130616092

PATIENT
  Age: 70 Year
  Sex: Male
  Weight: 78.02 kg

DRUGS (27)
  1. POTASSIUM CHLORIDE. [Concomitant]
     Active Substance: POTASSIUM CHLORIDE
     Indication: MINERAL SUPPLEMENTATION
     Route: 048
  2. NIACIN. [Concomitant]
     Active Substance: NIACIN
     Indication: BLOOD CHOLESTEROL
     Route: 048
  3. VITAMIN E [Concomitant]
     Active Substance: .ALPHA.-TOCOPHEROL
     Route: 065
  4. OMEPRAZOLE. [Concomitant]
     Active Substance: OMEPRAZOLE
     Indication: GASTRIC DISORDER
     Route: 048
  5. LOVASTATIN. [Concomitant]
     Active Substance: LOVASTATIN
     Indication: BLOOD CHOLESTEROL
     Route: 048
  6. VITAMIN B COMPLEX [Concomitant]
     Active Substance: CYANOCOBALAMIN\DEXPANTHENOL\NIACINAMIDE\PYRIDOXINE HYDROCHLORIDE\RIBOFLAVIN 5^-PHOSPHATE SODIUM\THIAMINE HYDROCHLORIDE\VITAMIN B COMPLEX
     Route: 065
  7. IRON [Concomitant]
     Active Substance: IRON
     Route: 065
  8. CARVEDILOL. [Concomitant]
     Active Substance: CARVEDILOL
     Indication: BLOOD PRESSURE
     Route: 048
  9. NIFEDIPINE ER [Concomitant]
     Active Substance: NIFEDIPINE
     Indication: BLOOD PRESSURE
     Route: 048
  10. HYDRALAZINE [Concomitant]
     Active Substance: HYDRALAZINE HYDROCHLORIDE
     Indication: BLOOD PRESSURE
     Route: 048
  11. BETA CAROTENE [Concomitant]
     Route: 065
  12. ALPHA LIPOIC ACID [Concomitant]
     Active Substance: .ALPHA.-LIPOIC ACID
     Route: 065
  13. SIMPONI [Suspect]
     Active Substance: GOLIMUMAB
     Indication: ANKYLOSING SPONDYLITIS
     Route: 058
     Dates: start: 20130124
  14. LISINOPRIL AND HYDROCHLOROTHIAZIDE [Concomitant]
     Active Substance: HYDROCHLOROTHIAZIDE\LISINOPRIL
     Indication: BLOOD PRESSURE
     Dosage: 20-12.5
     Route: 048
  15. CLONIDINE. [Concomitant]
     Active Substance: CLONIDINE
     Indication: BLOOD PRESSURE
     Dosage: 0.3/24
     Route: 062
  16. GABAPENTIN. [Concomitant]
     Active Substance: GABAPENTIN
     Indication: NEUROPATHY PERIPHERAL
     Dosage: 1 CAPSULE IN AM 2 CAPSULE IN PM
     Route: 048
  17. ASPIRIN. [Concomitant]
     Active Substance: ASPIRIN
     Indication: CARDIAC DISORDER
     Route: 048
  18. VITAMIN C [Concomitant]
     Active Substance: ASCORBIC ACID
     Route: 065
  19. OMEPRAZOLE. [Concomitant]
     Active Substance: OMEPRAZOLE
     Indication: NAUSEA
     Route: 048
  20. VITAMIN-SUPPLEMENTS [Concomitant]
     Route: 065
  21. FISH OIL [Concomitant]
     Active Substance: FISH OIL
     Route: 065
  22. VITAMINS NOS [Concomitant]
     Active Substance: VITAMINS
     Route: 048
  23. FENTANYL. [Concomitant]
     Active Substance: FENTANYL
     Indication: PAIN
     Route: 062
  24. SULFASALAZINE. [Concomitant]
     Active Substance: SULFASALAZINE
     Indication: ANKYLOSING SPONDYLITIS
     Route: 048
  25. ZINC [Concomitant]
     Active Substance: ZINC\ZINC CHLORIDE
     Route: 065
  26. VITAMIN D3 [Concomitant]
     Active Substance: CHOLECALCIFEROL
     Route: 065
  27. HYDROCODONE [Concomitant]
     Active Substance: HYDROCODONE
     Indication: PAIN
     Dosage: 5-325
     Route: 048

REACTIONS (3)
  - Device malfunction [Unknown]
  - Drug dose omission [Not Recovered/Not Resolved]
  - Injury associated with device [Unknown]

NARRATIVE: CASE EVENT DATE: 20130623
